FAERS Safety Report 6011388-2 (Version None)
Quarter: 2008Q4

REPORT INFORMATION
  Report Type: 
  Country: None (occurrence: None)
  Receive Date: 20081217
  Receipt Date: 20081217
  Transmission Date: 20090506
  Serious: Yes (Life-Threatening, Hospitalization, Other)
  Sender: FDA-Public Use
  Company Number: None

PATIENT
  Age: 46 Year
  Sex: Male
  Weight: 90.7194 kg

DRUGS (1)
  1. EFFEXOR XR [Suspect]
     Indication: DRUG USE FOR UNKNOWN INDICATION
     Dosage: ONE PILL DAILY PO
     Route: 048
     Dates: start: 20040110, end: 20081216

REACTIONS (19)
  - ABASIA [None]
  - AGGRESSION [None]
  - BLOOD PRESSURE INCREASED [None]
  - CONVULSION [None]
  - COORDINATION ABNORMAL [None]
  - CYANOSIS [None]
  - DISORIENTATION [None]
  - DISTURBANCE IN ATTENTION [None]
  - DRUG DOSE OMISSION [None]
  - FACIAL PALSY [None]
  - HEADACHE [None]
  - INCOHERENT [None]
  - LIMB IMMOBILISATION [None]
  - LOSS OF CONSCIOUSNESS [None]
  - MEMORY IMPAIRMENT [None]
  - PARAESTHESIA [None]
  - PERIPHERAL COLDNESS [None]
  - TINNITUS [None]
  - VISION BLURRED [None]
